FAERS Safety Report 5105658-X (Version None)
Quarter: 2006Q3

REPORT INFORMATION
  Report Type: 
  Country: None (occurrence: None)
  Receive Date: 20060731
  Receipt Date: 20060407
  Transmission Date: 20061208
  Serious: Yes (Hospitalization, Other)
  Sender: FDA-Public Use
  Company Number: US-JNJFOC-20060402374

PATIENT
  Age: 32 Year
  Sex: Male
  Weight: 104.3273 kg

DRUGS (6)
  1. RISPERDAL [Suspect]
     Indication: HALLUCINATION, AUDITORY
     Dosage: 8 MG, ORAL; 6 MG, ORAL
     Route: 048
     Dates: start: 20050101, end: 20050801
  2. RISPERDAL [Suspect]
     Indication: MENTAL DISORDER
     Dosage: 8 MG, ORAL; 6 MG, ORAL
     Route: 048
     Dates: start: 20050101, end: 20050801
  3. RISPERDAL [Suspect]
     Indication: HALLUCINATION, AUDITORY
     Dosage: 8 MG, ORAL; 6 MG, ORAL
     Route: 048
     Dates: start: 20050901, end: 20060307
  4. RISPERDAL [Suspect]
     Indication: MENTAL DISORDER
     Dosage: 8 MG, ORAL; 6 MG, ORAL
     Route: 048
     Dates: start: 20050901, end: 20060307
  5. ABILIFY [Concomitant]
  6. BENADRYL [Concomitant]

REACTIONS (4)
  - DYSKINESIA [None]
  - HALLUCINATION, AUDITORY [None]
  - MUSCLE TWITCHING [None]
  - WEIGHT INCREASED [None]
